FAERS Safety Report 11316865 (Version 1)
Quarter: 2015Q3

REPORT INFORMATION
  Report Type: Spontaneous
  Country: US (occurrence: US)
  Receive Date: 20150728
  Receipt Date: 20150728
  Transmission Date: 20151125
  Serious: Yes (Other)
  Sender: FDA-Public Use
  Company Number: US-ASTRAZENECA-2015SE71809

PATIENT
  Age: 43 Year
  Sex: Male

DRUGS (12)
  1. CRESTOR [Suspect]
     Active Substance: ROSUVASTATIN CALCIUM
     Route: 048
  2. ASPIRIN. [Concomitant]
     Active Substance: ASPIRIN
  3. DOXEPIN [Concomitant]
     Active Substance: DOXEPIN
  4. DIAZEPAM. [Concomitant]
     Active Substance: DIAZEPAM
     Dosage: ON OFF
     Dates: start: 2008
  5. PLAVIX [Concomitant]
     Active Substance: CLOPIDOGREL BISULFATE
     Dates: start: 2006, end: 2008
  6. METOPROLOL [Concomitant]
     Active Substance: METOPROLOL
     Dates: start: 2006
  7. HYDROCODONE [Concomitant]
     Active Substance: HYDROCODONE
     Dates: start: 2005, end: 2014
  8. MORPHINE [Concomitant]
     Active Substance: MORPHINE
     Dates: start: 2015
  9. OXYCODONE [Concomitant]
     Active Substance: OXYCODONE
     Dates: start: 2013
  10. VITAMIN B12 [Concomitant]
     Active Substance: CYANOCOBALAMIN
     Indication: SUPPLEMENTATION THERAPY
  11. OMEGA 3 [Concomitant]
     Active Substance: OMEGA-3 FATTY ACIDS
     Indication: SUPPLEMENTATION THERAPY
  12. MAGNESIUM [Concomitant]
     Active Substance: MAGNESIUM
     Indication: SUPPLEMENTATION THERAPY

REACTIONS (6)
  - Anxiety [Unknown]
  - Depression [Unknown]
  - Arthralgia [Unknown]
  - Hypertension [Unknown]
  - Arthritis [Unknown]
  - Coronary artery occlusion [Unknown]

NARRATIVE: CASE EVENT DATE: 2006
